FAERS Safety Report 24839587 (Version 2)
Quarter: 2025Q1

REPORT INFORMATION
  Report Type: Report from Study
  Country: US (occurrence: US)
  Receive Date: 20250114
  Receipt Date: 20250225
  Transmission Date: 20250408
  Serious: Yes (Hospitalization, Other)
  Sender: TAKEDA
  Company Number: US-TAKEDA-2024TUS086337

PATIENT
  Sex: Female

DRUGS (24)
  1. PONATINIB [Suspect]
     Active Substance: PONATINIB
     Indication: Acute lymphocytic leukaemia (in remission)
     Dosage: 15 MILLIGRAM, QD
  2. PONATINIB [Suspect]
     Active Substance: PONATINIB
     Dosage: 15 MILLIGRAM, QD
  3. PONATINIB [Suspect]
     Active Substance: PONATINIB
     Dosage: 15 MILLIGRAM, QD
  4. PONATINIB [Suspect]
     Active Substance: PONATINIB
  5. BLINCYTO [Concomitant]
     Active Substance: BLINATUMOMAB
     Indication: Acute lymphocytic leukaemia
  6. ELIQUIS [Concomitant]
     Active Substance: APIXABAN
  7. ACYCLOVIR [Concomitant]
     Active Substance: ACYCLOVIR
  8. FLUCONAZOLE [Concomitant]
     Active Substance: FLUCONAZOLE
  9. LISINOPRIL [Concomitant]
     Active Substance: LISINOPRIL
  10. METFORMIN HYDROCHLORIDE [Concomitant]
     Active Substance: METFORMIN HYDROCHLORIDE
  11. CIPROFLOXACIN [Concomitant]
     Active Substance: CIPROFLOXACIN
  12. GABAPENTIN [Concomitant]
     Active Substance: GABAPENTIN
  13. SERTRALINE HYDROCHLORIDE [Concomitant]
     Active Substance: SERTRALINE HYDROCHLORIDE
  14. SULFAMETHOXAZOLE AND TRIMETHOPRIM [Concomitant]
     Active Substance: SULFAMETHOXAZOLE\TRIMETHOPRIM
  15. FERROUS SULFATE [Concomitant]
     Active Substance: FERROUS SULFATE
  16. OMEPRAZOLE [Concomitant]
     Active Substance: OMEPRAZOLE
  17. LORATADINE [Concomitant]
     Active Substance: LORATADINE
  18. METHOCARBAMOL [Concomitant]
     Active Substance: METHOCARBAMOL
  19. XALATAN [Concomitant]
     Active Substance: LATANOPROST
  20. DEXAMETHASONE [Concomitant]
     Active Substance: DEXAMETHASONE
  21. INSULIN ASPART [Concomitant]
     Active Substance: INSULIN ASPART
  22. DORZOLAMIDE AND TIMOLOL [Concomitant]
     Active Substance: DORZOLAMIDE HYDROCHLORIDE\TIMOLOL MALEATE
  23. ASPIRIN [Concomitant]
     Active Substance: ASPIRIN
  24. ONDANSETRON HYDROCHLORIDE [Concomitant]
     Active Substance: ONDANSETRON HYDROCHLORIDE

REACTIONS (18)
  - Pneumonia fungal [Unknown]
  - Weight bearing difficulty [Unknown]
  - Tremor [Unknown]
  - Tinnitus [Unknown]
  - Chest pain [Unknown]
  - Pain in extremity [Unknown]
  - Blood pressure increased [Unknown]
  - Confusional state [Unknown]
  - Headache [Unknown]
  - Platelet count decreased [Unknown]
  - Pyrexia [Unknown]
  - Arthralgia [Unknown]
  - Product distribution issue [Unknown]
  - Product dose omission issue [Unknown]
  - Affective disorder [Unknown]
  - Off label use [Unknown]
  - Fatigue [Unknown]
  - Migraine [Unknown]
